FAERS Safety Report 14457422 (Version 2)
Quarter: 2018Q2

REPORT INFORMATION
  Report Type: Spontaneous
  Country: US (occurrence: US)
  Receive Date: 20180130
  Receipt Date: 20180613
  Transmission Date: 20180711
  Serious: No
  Sender: FDA-Public Use
  Company Number: US-PFIZER INC-2015299720

PATIENT
  Age: 57 Year
  Sex: Female
  Weight: 68.27 kg

DRUGS (2)
  1. IBRANCE [Suspect]
     Active Substance: PALBOCICLIB
     Dosage: 75 MG, UNK
  2. IBRANCE [Suspect]
     Active Substance: PALBOCICLIB
     Indication: BREAST CANCER METASTATIC
     Dosage: 125 MG, CYCLIC,  (3 WEEKS ON, 1 WEEK OFF) (1 TAB DAILY; FOR 21 DAYS)

REACTIONS (1)
  - Neoplasm progression [Unknown]
